FAERS Safety Report 6266635-9 (Version None)
Quarter: 2009Q3

REPORT INFORMATION
  Report Type: 
  Country: None (occurrence: None)
  Receive Date: 20090710
  Receipt Date: 20090617
  Transmission Date: 20100115
  Serious: Yes (Hospitalization)
  Sender: FDA-Public Use
  Company Number: ADE2009-0695

PATIENT
  Age: 56 Year
  Sex: Female
  Weight: 205.5 kg

DRUGS (8)
  1. HYDROCHLOROTHIAZIDE [Suspect]
     Indication: HYPERTENSION
     Dosage: 25MG - DAILY - ORAL
     Route: 048
     Dates: start: 19930101
  2. CP-945, 598; PLACEBO [Suspect]
     Indication: OBESITY
     Dosage: 20MG - DAILY - ORAL
     Route: 048
     Dates: start: 20080625
  3. ENALAPRIL MALEATE [Suspect]
     Indication: HYPERTENSION
     Dosage: 20MG - BID - ORAL
     Route: 048
     Dates: start: 19930101
  4. FELODIPINE [Suspect]
     Indication: HYPERTENSION
     Dosage: 5MG - QD/BID - ORAL
     Route: 048
     Dates: start: 19930101
  5. ASPIRIN [Concomitant]
  6. TYLENOL [Concomitant]
  7. COD-LIVER OIL [Concomitant]
  8. GERITOL (VITAMINS NOS) [Concomitant]

REACTIONS (2)
  - ANXIETY DISORDER [None]
  - DYSPNOEA [None]
